FAERS Safety Report 18537576 (Version 1)
Quarter: 2020Q4

REPORT INFORMATION
  Report Type: Spontaneous
  Country: US (occurrence: US)
  Receive Date: 20201124
  Receipt Date: 20201124
  Transmission Date: 20210114
  Serious: Yes (Other)
  Sender: FDA-Public Use
  Company Number: US-PIRAMAL PHARMA LIMITED-2020-PEL-000663

PATIENT

DRUGS (4)
  1. GABLOFEN [Suspect]
     Active Substance: BACLOFEN
     Indication: MUSCLE SPASTICITY
     Dosage: 219.8 MICROGRAM PER DAY
     Route: 037
  2. LIORESAL [Suspect]
     Active Substance: BACLOFEN
     Indication: MUSCLE SPASTICITY
     Dosage: 650 MICROGRAM PER DAY
     Route: 037
  3. GABLOFEN [Suspect]
     Active Substance: BACLOFEN
     Dosage: 96 MICROGRAM DAY
     Route: 037
  4. GABLOFEN [Suspect]
     Active Substance: BACLOFEN
     Dosage: 20% INCREASE ON THE PATIENT?S DOSE
     Route: 037

REACTIONS (5)
  - Underdose [Recovered/Resolved]
  - Withdrawal syndrome [Recovered/Resolved]
  - Device infusion issue [Recovered/Resolved]
  - Overdose [Recovered/Resolved]
  - Catheter site granuloma [Recovered/Resolved]
